FAERS Safety Report 13774907 (Version 1)
Quarter: 2017Q3

REPORT INFORMATION
  Report Type: Spontaneous
  Country: US (occurrence: US)
  Receive Date: 20170720
  Receipt Date: 20170720
  Transmission Date: 20171127
  Serious: Yes (Life-Threatening)
  Sender: FDA-Public Use
  Company Number: None

PATIENT
  Age: 68 Year
  Sex: Male
  Weight: 84.82 kg

DRUGS (2)
  1. REGADENOSON [Suspect]
     Active Substance: REGADENOSON
     Indication: CARDIOVASCULAR DISORDER
     Route: 042
     Dates: start: 20170712, end: 20170712
  2. REGADENOSON [Suspect]
     Active Substance: REGADENOSON
     Indication: SCAN MYOCARDIAL PERFUSION
     Route: 042
     Dates: start: 20170712, end: 20170712

REACTIONS (3)
  - Ventricular asystole [None]
  - Ventricular extrasystoles [None]
  - Electrocardiogram ST segment depression [None]

NARRATIVE: CASE EVENT DATE: 20170712
